FAERS Safety Report 8687654 (Version 4)
Quarter: 2013Q3

REPORT INFORMATION
  Report Type: Report from Study
  Country: CN (occurrence: CN)
  Receive Date: 20120727
  Receipt Date: 20130829
  Transmission Date: 20140515
  Serious: Yes (Death, Hospitalization)
  Sender: FDA-Public Use
  Company Number: CN-PFIZER INC-2012104427

PATIENT
  Age: 65 Year
  Sex: Male
  Weight: 81 kg

DRUGS (8)
  1. CRIZOTINIB [Suspect]
     Indication: NON-SMALL CELL LUNG CANCER
     Dosage: 250 MG, 2X/DAY
     Route: 048
     Dates: start: 20111118, end: 20120323
  2. CRIZOTINIB [Suspect]
     Dosage: 250 MG, 2X/DAY
     Route: 048
     Dates: start: 20120329, end: 20120413
  3. ONDANSETRON HYDROCHLORIDE [Concomitant]
     Indication: NAUSEA
     Dosage: 8 MG, 3X/DAY
     Route: 048
     Dates: start: 20120219
  4. ONDANSETRON HYDROCHLORIDE [Concomitant]
     Indication: VOMITING
  5. METOCLOPRAMIDE [Concomitant]
     Indication: NAUSEA
     Dosage: 10 MG, 1X/DAY
     Route: 048
     Dates: start: 20120219
  6. METOCLOPRAMIDE [Concomitant]
     Indication: VOMITING
  7. ACETAMINOPHEN [Concomitant]
     Indication: BONE PAIN
     Dosage: 1X/DAY
     Route: 048
     Dates: start: 20120217
  8. OXYCODONE [Concomitant]
     Indication: BONE PAIN
     Dosage: 1X/DAY
     Route: 048
     Dates: start: 20120217

REACTIONS (4)
  - Death [Fatal]
  - Decreased appetite [Unknown]
  - Hypokalaemia [Unknown]
  - Hypoproteinaemia [Unknown]
